FAERS Safety Report 4588992-1 (Version None)
Quarter: 2005Q1

REPORT INFORMATION
  Report Type: 
  Country: None (occurrence: None)
  Receive Date: 20050216
  Receipt Date: 20050201
  Transmission Date: 20050727
  Serious: Yes (Hospitalization)
  Sender: FDA-Public Use
  Company Number: PERIO-2005-0011

PATIENT
  Age: 27 Year
  Sex: Female

DRUGS (4)
  1. PERIOSTAT [Suspect]
     Indication: ACNE
     Dosage: 40 MG (20 MG, BID) PER ORAL
     Route: 048
     Dates: start: 20041122, end: 20050111
  2. ORAL CONTRACEPTION [Concomitant]
  3. SPIRONOLACTONE [Concomitant]
  4. PLEXION [Concomitant]

REACTIONS (1)
  - CLOSTRIDIUM COLITIS [None]
